FAERS Safety Report 6735889-4 (Version None)
Quarter: 2010Q2

REPORT INFORMATION
  Report Type: 
  Country: None (occurrence: None)
  Receive Date: 20100521
  Receipt Date: 20100513
  Transmission Date: 20101027
  Serious: Yes (Other)
  Sender: FDA-Public Use
  Company Number: A0860442A

PATIENT
  Sex: Male

DRUGS (4)
  1. SELZENTRY [Suspect]
     Indication: HIV INFECTION
     Route: 065
  2. GLYBURIDE [Concomitant]
  3. INTELENCE [Concomitant]
  4. PREZISTA [Concomitant]

REACTIONS (1)
  - HYPOGLYCAEMIA [None]
